FAERS Safety Report 9770108 (Version 2)
Quarter: 2013Q4

REPORT INFORMATION
  Report Type: Spontaneous
  Country: US (occurrence: US)
  Receive Date: 20131218
  Receipt Date: 20131218
  Transmission Date: 20140711
  Serious: No
  Sender: FDA-Public Use
  Company Number: US-VERTEX PHARMACEUTICALS INC-AE-2011-000956

PATIENT
  Age: 53 Year
  Sex: Male
  Weight: 76.36 kg

DRUGS (6)
  1. INCIVEK [Suspect]
     Indication: HEPATITIS C
     Route: 048
     Dates: start: 20110814
  2. PEGINTRON [Concomitant]
     Indication: HEPATITIS C
     Route: 058
     Dates: start: 20110717
  3. RIBAVIRIN ZYDUS [Concomitant]
     Indication: HEPATITIS C
     Route: 048
     Dates: start: 20110717
  4. OMEPRAZOLE [Concomitant]
  5. TOPROL XL [Concomitant]
  6. SERTRALINE [Concomitant]

REACTIONS (2)
  - Diarrhoea [Recovered/Resolved]
  - Haemorrhoids [Not Recovered/Not Resolved]
